FAERS Safety Report 25952859 (Version 1)
Quarter: 2025Q4

REPORT INFORMATION
  Report Type: Spontaneous
  Country: US (occurrence: US)
  Receive Date: 20251023
  Receipt Date: 20251023
  Transmission Date: 20260118
  Serious: No
  Sender: ELI LILLY AND COMPANY
  Company Number: US-ELI_LILLY_AND_COMPANY-US202510017732

PATIENT
  Age: 82 Year
  Sex: Male

DRUGS (1)
  1. TRULICITY [Suspect]
     Active Substance: DULAGLUTIDE
     Indication: Product used for unknown indication
     Dosage: 0.75 MG, UNKNOWN
     Route: 065

REACTIONS (11)
  - Pollakiuria [Unknown]
  - Incontinence [Unknown]
  - Thirst [Unknown]
  - Weight decreased [Unknown]
  - Hunger [Unknown]
  - Vision blurred [Unknown]
  - Irritability [Unknown]
  - Insomnia [Unknown]
  - Hypoaesthesia [Unknown]
  - Incorrect dose administered [Unknown]
  - Fatigue [Unknown]
